FAERS Safety Report 9253908 (Version 1)
Quarter: 2013Q2

REPORT INFORMATION
  Report Type: Spontaneous
  Country: US (occurrence: None)
  Receive Date: 20130422
  Receipt Date: 20130422
  Transmission Date: 20140414
  Serious: Yes (Other)
  Sender: FDA-Public Use
  Company Number: None

PATIENT
  Age: 51 Year
  Sex: Female
  Weight: 63.5 kg

DRUGS (3)
  1. ZETIA [Suspect]
     Indication: BLOOD CHOLESTEROL INCREASED
     Dosage: 10 MG  1  PO
     Route: 048
     Dates: start: 20130215, end: 20130411
  2. HYDROCHLOROTHIAZIDE [Concomitant]
  3. LOSARTAN [Concomitant]

REACTIONS (5)
  - Pain in extremity [None]
  - Pain in extremity [None]
  - Bursitis [None]
  - Epicondylitis [None]
  - Blood urine present [None]
